FAERS Safety Report 13913965 (Version 1)
Quarter: 2017Q3

REPORT INFORMATION
  Report Type: Spontaneous
  Country: US (occurrence: US)
  Receive Date: 20170828
  Receipt Date: 20170828
  Transmission Date: 20171127
  Serious: No
  Sender: FDA-Public Use
  Company Number: US-ROCHE-1140854

PATIENT
  Sex: Male
  Weight: 44.3 kg

DRUGS (1)
  1. NUTROPIN AQ [Suspect]
     Active Substance: SOMATROPIN
     Indication: GROWTH HORMONE DEFICIENCY
     Dosage: 0.25 MG/KG/WK IN 37 CC
     Route: 058
     Dates: start: 19980211

REACTIONS (4)
  - Ear pain [Unknown]
  - Rash [Unknown]
  - Vomiting [Unknown]
  - Oropharyngeal pain [Unknown]
